FAERS Safety Report 10500803 (Version 3)
Quarter: 2015Q2

REPORT INFORMATION
  Report Type: Report from Study
  Country: NL (occurrence: NL)
  Receive Date: 20141007
  Receipt Date: 20150414
  Transmission Date: 20150821
  Serious: Yes (Death)
  Sender: FDA-Public Use
  Company Number: NL-BEH-2014045273

PATIENT
  Age: 85 Year
  Sex: Female

DRUGS (1)
  1. HAEMOCOMPLETTAN P [Suspect]
     Active Substance: FIBRINOGEN HUMAN
     Indication: CARDIAC OPERATION
     Dates: start: 20140903

REACTIONS (1)
  - Postoperative thrombosis [Fatal]

NARRATIVE: CASE EVENT DATE: 20140906
